FAERS Safety Report 16111016 (Version 1)
Quarter: 2019Q1

REPORT INFORMATION
  Report Type: Spontaneous
  Country: US (occurrence: US)
  Receive Date: 20190325
  Receipt Date: 20190325
  Transmission Date: 20190418
  Serious: No
  Sender: FDA-Public Use
  Company Number: US-009507513-1903USA010731

PATIENT
  Age: 48 Year
  Sex: Female

DRUGS (1)
  1. INVANZ [Suspect]
     Active Substance: ERTAPENEM SODIUM
     Indication: SALMONELLOSIS
     Dosage: 1 GRAM DAILY
     Route: 042

REACTIONS (1)
  - Off label use [Unknown]
